FAERS Safety Report 6686173-9 (Version None)
Quarter: 2010Q2

REPORT INFORMATION
  Report Type: 
  Country: None (occurrence: None)
  Receive Date: 20100419
  Receipt Date: 20100412
  Transmission Date: 20101027
  Serious: Yes (Hospitalization)
  Sender: FDA-Public Use
  Company Number: PHHY2010CA22133

PATIENT
  Sex: Female
  Weight: 54.5 kg

DRUGS (5)
  1. EXELON [Suspect]
     Indication: DEMENTIA ALZHEIMER'S TYPE
     Dosage: PATCH 5 CM2
  2. RISPERDAL [Concomitant]
  3. CRESTOR [Concomitant]
     Dosage: 5 MG, QHS
     Route: 048
  4. CELEXA [Concomitant]
     Dosage: 40 MG, QD
     Route: 048
  5. SERAX [Concomitant]
     Dosage: 15 MG, QHS
     Route: 048

REACTIONS (4)
  - BRADYCARDIA [None]
  - DYSPNOEA [None]
  - HYPOTENSION [None]
  - SYNCOPE [None]
